FAERS Safety Report 24326523 (Version 1)
Quarter: 2024Q3

REPORT INFORMATION
  Report Type: Spontaneous
  Country: US (occurrence: US)
  Receive Date: 20240917
  Receipt Date: 20240917
  Transmission Date: 20241016
  Serious: No
  Sender: ELI LILLY AND CO
  Company Number: US-ELI_LILLY_AND_COMPANY-US202409009468

PATIENT
  Age: 63 Year
  Sex: Female

DRUGS (8)
  1. ZEPBOUND [Suspect]
     Active Substance: TIRZEPATIDE
     Indication: Body mass index increased
     Dosage: 7.5 MG, UNKNOWN
     Route: 065
     Dates: start: 202309
  2. ZEPBOUND [Suspect]
     Active Substance: TIRZEPATIDE
     Indication: Body mass index increased
     Dosage: 7.5 MG, UNKNOWN
     Route: 065
     Dates: start: 202309
  3. ZEPBOUND [Suspect]
     Active Substance: TIRZEPATIDE
     Indication: Body mass index increased
     Dosage: 7.5 MG, UNKNOWN
     Route: 065
     Dates: start: 202309
  4. ZEPBOUND [Suspect]
     Active Substance: TIRZEPATIDE
     Indication: Body mass index increased
     Dosage: 7.5 MG, UNKNOWN
     Route: 065
     Dates: start: 202309
  5. ZEPBOUND [Suspect]
     Active Substance: TIRZEPATIDE
     Indication: Dyspnoea
  6. ZEPBOUND [Suspect]
     Active Substance: TIRZEPATIDE
     Indication: Dyspnoea
  7. ZEPBOUND [Suspect]
     Active Substance: TIRZEPATIDE
     Indication: Dyspnoea
  8. ZEPBOUND [Suspect]
     Active Substance: TIRZEPATIDE
     Indication: Dyspnoea

REACTIONS (3)
  - Injection site pain [Recovering/Resolving]
  - Injection site bruising [Recovering/Resolving]
  - Injection site swelling [Recovering/Resolving]

NARRATIVE: CASE EVENT DATE: 20240824
